FAERS Safety Report 23935909 (Version 1)
Quarter: 2024Q2

REPORT INFORMATION
  Report Type: Spontaneous
  Country: PT (occurrence: PT)
  Receive Date: 20240604
  Receipt Date: 20240604
  Transmission Date: 20240715
  Serious: Yes (Other)
  Sender: FDA-Public Use
  Company Number: None

PATIENT
  Age: 64 Year
  Sex: Male
  Weight: 67 kg

DRUGS (4)
  1. BUPRENORPHINE [Suspect]
     Active Substance: BUPRENORPHINE
     Indication: Cancer pain
     Dosage: 1 PATCH EVERY 12 HOURS, BUPRENORPHINE RATIOPHARM
     Route: 062
     Dates: start: 20240301, end: 20240412
  2. PREGABALINA ARISTO [Concomitant]
     Indication: Product used for unknown indication
     Route: 048
  3. MIRTAZAPINE [Concomitant]
     Active Substance: MIRTAZAPINE
     Indication: Product used for unknown indication
     Dosage: MIRTAZAPINA RATIOPHARM
     Route: 048
  4. EDARBI [Concomitant]
     Active Substance: AZILSARTAN KAMEDOXOMIL
     Indication: Product used for unknown indication
     Route: 048

REACTIONS (2)
  - Application site wound [Recovering/Resolving]
  - Application site rash [Recovering/Resolving]

NARRATIVE: CASE EVENT DATE: 20240301
